FAERS Safety Report 9547577 (Version 1)
Quarter: 2013Q3

REPORT INFORMATION
  Report Type: Spontaneous
  Country: US (occurrence: None)
  Receive Date: 20130923
  Receipt Date: 20130923
  Transmission Date: 20140515
  Serious: Yes (Other)
  Sender: FDA-Public Use
  Company Number: None

PATIENT
  Age: 78 Year
  Sex: Female
  Weight: 72.58 kg

DRUGS (1)
  1. AFFINTOR [Suspect]
     Indication: BREAST CANCER
     Route: 048
     Dates: start: 20120822

REACTIONS (2)
  - Dyspnoea [None]
  - Pulmonary oedema [None]
